FAERS Safety Report 19950402 (Version 1)
Quarter: 2021Q4

REPORT INFORMATION
  Report Type: Spontaneous
  Country: CA (occurrence: CA)
  Receive Date: 20211013
  Receipt Date: 20211013
  Transmission Date: 20220303
  Serious: Yes (Hospitalization)
  Sender: FDA-Public Use
  Company Number: CA-ROCHE-2932211

PATIENT
  Age: 54 Year
  Sex: Male

DRUGS (17)
  1. RITUXIMAB [Suspect]
     Active Substance: RITUXIMAB
     Indication: Rheumatoid arthritis
     Route: 042
  2. HYDROXYCHLOROQUINE SULFATE [Suspect]
     Active Substance: HYDROXYCHLOROQUINE SULFATE
     Indication: Product used for unknown indication
     Route: 065
  3. METHYLPREDNISOLONE SODIUM SUCCINATE [Suspect]
     Active Substance: METHYLPREDNISOLONE SODIUM SUCCINATE
     Indication: Pneumonia
     Route: 042
  4. ACETAMINOPHEN [Concomitant]
     Active Substance: ACETAMINOPHEN
     Route: 048
  5. CICLESONIDE [Concomitant]
     Active Substance: CICLESONIDE
     Route: 065
  6. DIPHENHYDRAMINE HYDROCHLORIDE [Concomitant]
     Active Substance: DIPHENHYDRAMINE HYDROCHLORIDE
     Route: 048
  7. FLUTICASONE PROPIONATE [Concomitant]
     Active Substance: FLUTICASONE PROPIONATE
  8. FOLIC ACID [Concomitant]
     Active Substance: FOLIC ACID
  9. HYDROCHLOROTHIAZIDE [Concomitant]
     Active Substance: HYDROCHLOROTHIAZIDE
  10. METHOTREXATE [Concomitant]
     Active Substance: METHOTREXATE
     Route: 048
  11. METHYLPREDNISOLONE [Concomitant]
     Active Substance: METHYLPREDNISOLONE
     Route: 042
  12. NAPROXEN SODIUM [Concomitant]
     Active Substance: NAPROXEN SODIUM
  13. NIFEDIPINE [Concomitant]
     Active Substance: NIFEDIPINE
  14. PANTOPRAZOLE [Concomitant]
     Active Substance: PANTOPRAZOLE
     Route: 065
  15. PREDNISONE [Concomitant]
     Active Substance: PREDNISONE
  16. ROSUVASTATIN CALCIUM [Concomitant]
     Active Substance: ROSUVASTATIN CALCIUM
     Route: 048
  17. ALBUTEROL [Concomitant]
     Active Substance: ALBUTEROL

REACTIONS (29)
  - Anti-cyclic citrullinated peptide antibody [Recovered/Resolved]
  - Antinuclear antibody increased [Recovered/Resolved]
  - Aortic arteriosclerosis [Recovered/Resolved]
  - Arteriosclerosis coronary artery [Recovered/Resolved]
  - Arthralgia [Recovered/Resolved]
  - Back pain [Recovered/Resolved]
  - Basophil count increased [Recovered/Resolved]
  - C-reactive protein increased [Recovered/Resolved]
  - Chills [Recovered/Resolved]
  - Creatinine urine increased [Recovered/Resolved]
  - Diaphragm muscle weakness [Recovered/Resolved]
  - Drug ineffective [Unknown]
  - Eosinophil count increased [Recovered/Resolved]
  - Haematocrit decreased [Recovered/Resolved]
  - Haemoglobin decreased [Recovered/Resolved]
  - Hyperglycaemia [Recovered/Resolved]
  - Increased bronchial secretion [Recovered/Resolved]
  - Interstitial lung disease [Recovered/Resolved]
  - Mean cell haemoglobin decreased [Recovered/Resolved]
  - Mycobacterium avium complex infection [Recovered/Resolved]
  - Neutrophil count increased [Recovered/Resolved]
  - Pain [Recovered/Resolved]
  - Platelet count increased [Recovered/Resolved]
  - Pneumonia [Recovered/Resolved]
  - Red cell distribution width increased [Recovered/Resolved]
  - Rheumatoid factor increased [Recovered/Resolved]
  - Tension [Recovered/Resolved]
  - Upper-airway cough syndrome [Recovered/Resolved]
  - White blood cell count increased [Recovered/Resolved]
